FAERS Safety Report 7909369-4 (Version None)
Quarter: 2011Q4

REPORT INFORMATION
  Report Type: 
  Country: None (occurrence: None)
  Receive Date: 20111111
  Receipt Date: 20111108
  Transmission Date: 20120403
  Serious: No
  Sender: FDA-Public Use
  Company Number: US-PFIZER INC-2011249178

PATIENT
  Sex: Male
  Weight: 67.12 kg

DRUGS (13)
  1. XANAX [Concomitant]
     Indication: ANXIETY
     Dosage: 1 MG, DAILY
     Route: 048
  2. SIMVASTATIN [Concomitant]
     Indication: ANTICOAGULANT THERAPY
  3. CRESTOR [Concomitant]
     Dosage: 10 MG, 1X/DAY (QHS)
     Route: 048
  4. EFFIENT [Concomitant]
     Dosage: 10 MG, 1X/DAY (QD)
     Route: 048
  5. ACETYLSALICYLIC ACID [Concomitant]
     Indication: ANTICOAGULANT THERAPY
     Dosage: 325 MG, 1X/DAY
     Route: 048
  6. NIASPAN [Concomitant]
     Indication: HIGH DENSITY LIPOPROTEIN DECREASED
     Dosage: 1000 MG, DAILY
     Route: 048
  7. CHANTIX [Suspect]
     Dosage: 0.5 MG, 2X/DAY
     Route: 048
     Dates: start: 20110101, end: 20110101
  8. CITALOPRAM [Concomitant]
     Indication: DEPRESSION
     Dosage: 40 MG, DAILY
     Route: 048
  9. CHANTIX [Suspect]
     Indication: SMOKING CESSATION THERAPY
     Dosage: 0.5 MG, 1X/DAY
     Route: 048
     Dates: start: 20111001, end: 20110101
  10. PLAVIX [Concomitant]
     Indication: COAGULOPATHY
     Dosage: 75 MG, DAILY
     Route: 048
  11. CHANTIX [Suspect]
     Dosage: 1 MG, 2X/DAY
     Route: 048
     Dates: start: 20110101
  12. SIMVASTATIN [Concomitant]
     Indication: BLOOD PRESSURE ABNORMAL
     Dosage: UNK
     Route: 048
  13. TOPROL-XL [Concomitant]
     Indication: BLOOD PRESSURE ABNORMAL
     Dosage: 25 MG, DAILY
     Route: 048

REACTIONS (3)
  - GASTRIC DISORDER [None]
  - SLEEP DISORDER [None]
  - DEPRESSED MOOD [None]
